FAERS Safety Report 6269968-5 (Version None)
Quarter: 2009Q3

REPORT INFORMATION
  Report Type: 
  Country: None (occurrence: None)
  Receive Date: 20090716
  Receipt Date: 20090618
  Transmission Date: 20100115
  Serious: Yes (Death, Other)
  Sender: FDA-Public Use
  Company Number: PHEH2009US05689

PATIENT
  Sex: Female

DRUGS (2)
  1. EXJADE [Suspect]
     Indication: ACUTE MYELOID LEUKAEMIA
     Dosage: 1500 MG, QD
     Route: 048
  2. EXJADE [Suspect]
     Indication: IRON OVERLOAD

REACTIONS (3)
  - ABDOMINAL DISCOMFORT [None]
  - ACUTE MYELOID LEUKAEMIA RECURRENT [None]
  - SEPTIC SHOCK [None]
